FAERS Safety Report 6462110-7 (Version None)
Quarter: 2009Q4

REPORT INFORMATION
  Report Type: 
  Country: None (occurrence: None)
  Receive Date: 20091130
  Receipt Date: 20091117
  Transmission Date: 20100525
  Serious: Yes (Death)
  Sender: FDA-Public Use
  Company Number: GXKR2009CN11748

PATIENT
  Age: 77 Year
  Sex: Female

DRUGS (2)
  1. ACETYLSALICYLIC ACID SRT [Suspect]
     Indication: PULMONARY EMBOLISM
     Dosage: 100 MG, QD
     Route: 048
  2. ENOXAPARIN (NGX) [Suspect]
     Indication: PULMONARY EMBOLISM
     Dosage: 60 MG, Q12H
     Route: 058

REACTIONS (9)
  - ABDOMINAL PAIN LOWER [None]
  - ANAEMIA [None]
  - BACK PAIN [None]
  - COLD SWEAT [None]
  - GASTROINTESTINAL HAEMORRHAGE [None]
  - PALLOR [None]
  - RENAL FAILURE ACUTE [None]
  - RETROPERITONEAL HAEMATOMA [None]
  - SHOCK [None]
